FAERS Safety Report 4715941-5 (Version None)
Quarter: 2005Q3

REPORT INFORMATION
  Report Type: 
  Country: None (occurrence: None)
  Receive Date: 20050718
  Receipt Date: 20050310
  Transmission Date: 20060218
  Serious: Yes (Hospitalization)
  Sender: FDA-Public Use
  Company Number: US-MERCK-0503USA02011

PATIENT
  Age: 55 Year
  Sex: Male
  Weight: 143 kg

DRUGS (14)
  1. VIOXX [Suspect]
     Indication: PSORIATIC ARTHROPATHY
     Route: 048
     Dates: start: 20020101, end: 20040101
  2. VIOXX [Suspect]
     Route: 065
     Dates: start: 20000804
  3. CAPTOPRIL [Concomitant]
     Route: 065
     Dates: start: 20030101
  4. LASIX [Concomitant]
     Route: 065
     Dates: start: 20030101
  5. METOPROLOL [Concomitant]
     Route: 065
     Dates: start: 20030101
  6. ISOSORBIDE [Concomitant]
     Route: 065
     Dates: start: 20030101
  7. ASPIRIN [Concomitant]
     Route: 065
  8. PLAVIX [Concomitant]
     Indication: THROMBOSIS
     Route: 065
     Dates: start: 20030101
  9. ZOLOFT [Concomitant]
     Route: 065
     Dates: start: 19950101
  10. GLUCOTROL [Concomitant]
     Route: 065
  11. SYNTHROID [Concomitant]
     Route: 065
  12. SYNALAR [Concomitant]
     Route: 065
  13. HYDROCORTISONE OINTMENT [Concomitant]
     Route: 065
  14. KENALOG [Concomitant]
     Route: 065

REACTIONS (13)
  - ACUTE MYOCARDIAL INFARCTION [None]
  - ANGINA UNSTABLE [None]
  - ASTHENIA [None]
  - ATELECTASIS [None]
  - CORONARY ARTERY DISEASE [None]
  - EMOTIONAL DISTRESS [None]
  - GRAFT COMPLICATION [None]
  - HYPERTENSION [None]
  - PLEURAL EFFUSION [None]
  - PNEUMONIA [None]
  - POLYTRAUMATISM [None]
  - PULMONARY OEDEMA [None]
  - STAPHYLOCOCCAL OSTEOMYELITIS [None]
